FAERS Safety Report 16112503 (Version 12)
Quarter: 2021Q4

REPORT INFORMATION
  Report Type: Spontaneous
  Country: US (occurrence: US)
  Receive Date: 20190325
  Receipt Date: 20211029
  Transmission Date: 20220303
  Serious: Yes (Other)
  Sender: FDA-Public Use
  Company Number: US-PFIZER INC-2018093406

PATIENT
  Age: 68 Year
  Sex: Female

DRUGS (2)
  1. XELJANZ XR [Suspect]
     Active Substance: TOFACITINIB CITRATE
     Indication: Rheumatoid arthritis
     Dosage: 11 MG, 1X/DAY
     Route: 048
  2. COLCHICINE [Concomitant]
     Active Substance: COLCHICINE
     Dosage: UNK

REACTIONS (19)
  - Atrial fibrillation [Unknown]
  - Spinal deformity [Unknown]
  - Diabetes mellitus [Unknown]
  - Neoplasm [Unknown]
  - Fall [Unknown]
  - Upper limb fracture [Unknown]
  - Muscle injury [Unknown]
  - Limb injury [Unknown]
  - Joint injury [Unknown]
  - Carpal tunnel syndrome [Unknown]
  - Drug ineffective [Unknown]
  - Gout [Unknown]
  - Malaise [Unknown]
  - Body temperature increased [Unknown]
  - Gait disturbance [Unknown]
  - Muscle spasms [Unknown]
  - Rotator cuff syndrome [Unknown]
  - Arthritis [Unknown]
  - Foot deformity [Recovered/Resolved]

NARRATIVE: CASE EVENT DATE: 20190401
